FAERS Safety Report 5073268-9 (Version None)
Quarter: 2006Q3

REPORT INFORMATION
  Report Type: 
  Country: None (occurrence: None)
  Receive Date: 20060706
  Receipt Date: 20060329
  Transmission Date: 20061208
  Serious: Yes (Other)
  Sender: FDA-Public Use
  Company Number: 200610205BWH

PATIENT

DRUGS (3)
  1. LEVITRA [Suspect]
     Indication: DRUG USE FOR UNKNOWN INDICATION
     Dosage: 20 MG , ONCE , ORAL
     Route: 048
     Dates: start: 20060214
  2. DIOVAN [Concomitant]
  3. NORVASC [Concomitant]

REACTIONS (1)
  - SYNCOPE [None]
